FAERS Safety Report 5574603-5 (Version None)
Quarter: 2007Q4

REPORT INFORMATION
  Report Type: 
  Country: None (occurrence: None)
  Receive Date: 20071227
  Receipt Date: 20071214
  Transmission Date: 20080405
  Serious: Yes (Other)
  Sender: FDA-Public Use
  Company Number: JP-BRACCO-BEI-007777

PATIENT
  Sex: Female
  Weight: 60 kg

DRUGS (5)
  1. PROHANCE [Suspect]
     Indication: NUCLEAR MAGNETIC RESONANCE IMAGING
     Route: 042
     Dates: start: 20071129, end: 20071129
  2. PROHANCE [Suspect]
     Indication: BRAIN NEOPLASM MALIGNANT
     Route: 042
     Dates: start: 20071129, end: 20071129
  3. I.V. SOLUTION [Concomitant]
     Route: 042
     Dates: start: 20071129
  4. MUCODYNE [Concomitant]
     Route: 048
     Dates: start: 20071106, end: 20071129
  5. RULID [Concomitant]
     Route: 048
     Dates: start: 20071106, end: 20071129

REACTIONS (2)
  - GLOBAL AMNESIA [None]
  - NAUSEA [None]
